FAERS Safety Report 6460730-7 (Version None)
Quarter: 2009Q4

REPORT INFORMATION
  Report Type: 
  Country: None (occurrence: None)
  Receive Date: 20091130
  Receipt Date: 20091123
  Transmission Date: 20100525
  Serious: Yes (Life-Threatening)
  Sender: FDA-Public Use
  Company Number: DE-ASTRAZENECA-2009SE28122

PATIENT
  Age: 34 Year
  Sex: Female

DRUGS (1)
  1. SEROQUEL [Suspect]
     Dosage: 18 G
     Route: 048

REACTIONS (4)
  - ARRHYTHMIA [None]
  - OVERDOSE [None]
  - POLYURIA [None]
  - SUICIDE ATTEMPT [None]
